FAERS Safety Report 6654532-6 (Version None)
Quarter: 2010Q1

REPORT INFORMATION
  Report Type: 
  Country: None (occurrence: None)
  Receive Date: 20100326
  Receipt Date: 20100318
  Transmission Date: 20100710
  Serious: Yes (Hospitalization, Other)
  Sender: FDA-Public Use
  Company Number: FI-ABBOTT-10P-055-0628241-00

PATIENT
  Sex: Male
  Weight: 50.3 kg

DRUGS (3)
  1. HUMIRA [Suspect]
     Indication: CROHN'S DISEASE
     Dosage: 160 MG, 80 MG, 40 MG EOW
     Dates: start: 20091201, end: 20100128
  2. HUMIRA [Suspect]
     Dates: start: 20091215, end: 20091215
  3. PENTASA [Concomitant]
     Indication: CROHN'S DISEASE
     Route: 048
     Dates: start: 20081001, end: 20100101

REACTIONS (2)
  - BLOOD CREATININE INCREASED [None]
  - RENAL FAILURE ACUTE [None]
